FAERS Safety Report 8364451-5 (Version None)
Quarter: 2012Q2

REPORT INFORMATION
  Report Type: 
  Country: None (occurrence: None)
  Receive Date: 20120516
  Receipt Date: 20120507
  Transmission Date: 20120825
  Serious: Yes (Other)
  Sender: FDA-Public Use
  Company Number: HR-ASTRAZENECA-2012SE29244

PATIENT
  Age: 59 Year
  Sex: Female

DRUGS (5)
  1. LAAVEN HL TBL (HYDROCHLOROTHIAZIDE/ LISINOPRIL DIHYDRATE) [Suspect]
     Route: 048
  2. ATENOLOL [Suspect]
     Route: 048
  3. CRESTOR [Suspect]
     Route: 048
  4. URSO FALK [Concomitant]
     Route: 048
  5. VOLTAREN [Suspect]
     Dosage: AS REQUIRED
     Route: 048

REACTIONS (3)
  - TOOTHACHE [None]
  - HEPATOBILIARY DISEASE [None]
  - NASOPHARYNGITIS [None]
